FAERS Safety Report 5351107-6 (Version None)
Quarter: 2007Q2

REPORT INFORMATION
  Report Type: 
  Country: None (occurrence: None)
  Receive Date: 20070608
  Receipt Date: 20070531
  Transmission Date: 20071010
  Serious: No
  Sender: FDA-Public Use
  Company Number: US-ASTRAZENECA-2006UW08324

PATIENT
  Age: 512 Month
  Sex: Female
  Weight: 88.6 kg

DRUGS (4)
  1. SEROQUEL [Suspect]
     Indication: BIPOLAR DISORDER
     Route: 048
  2. SEROQUEL [Suspect]
     Indication: DEPRESSION
     Route: 048
  3. GEODON [Concomitant]
  4. ZYPREXA [Concomitant]

REACTIONS (1)
  - HYPERGLYCAEMIA [None]
